FAERS Safety Report 24237187 (Version 1)
Quarter: 2024Q3

REPORT INFORMATION
  Report Type: Spontaneous
  Country: US (occurrence: US)
  Receive Date: 20240822
  Receipt Date: 20240822
  Transmission Date: 20241016
  Serious: Yes (Hospitalization)
  Sender: BIOVITRUM
  Company Number: US-BIOVITRUM-2024-US-011136

PATIENT
  Age: 9 Month
  Sex: Female

DRUGS (3)
  1. SYNAGIS [Suspect]
     Active Substance: PALIVIZUMAB
     Indication: Respiratory syncytial virus infection
     Dates: start: 202401
  2. SYNAGIS [Suspect]
     Active Substance: PALIVIZUMAB
     Dates: start: 202403
  3. SYNAGIS [Suspect]
     Active Substance: PALIVIZUMAB

REACTIONS (2)
  - Respiratory syncytial virus infection [Unknown]
  - Influenza [Unknown]

NARRATIVE: CASE EVENT DATE: 20240805
